FAERS Safety Report 15000718 (Version 1)
Quarter: 2018Q2

REPORT INFORMATION
  Report Type: Spontaneous
  Country: CA (occurrence: CA)
  Receive Date: 20180612
  Receipt Date: 20180612
  Transmission Date: 20180711
  Serious: Yes (Disabling, Other)
  Sender: FDA-Public Use
  Company Number: CA-TEVA-2018-CA-902745

PATIENT
  Age: 25 Year
  Sex: Female
  Weight: 61.29 kg

DRUGS (1)
  1. CIPROFLOXACIN. [Suspect]
     Active Substance: CIPROFLOXACIN
     Indication: URINARY TRACT INFECTION
     Route: 048

REACTIONS (6)
  - Musculoskeletal stiffness [Recovering/Resolving]
  - Musculoskeletal pain [Recovering/Resolving]
  - Tendon discomfort [Recovering/Resolving]
  - Tendon disorder [Recovering/Resolving]
  - Tendon pain [Recovering/Resolving]
  - Ligament disorder [Recovering/Resolving]
